FAERS Safety Report 5693560-4 (Version None)
Quarter: 2008Q2

REPORT INFORMATION
  Report Type: 
  Country: None (occurrence: None)
  Receive Date: 20080402
  Receipt Date: 20080402
  Transmission Date: 20081010
  Serious: No
  Sender: FDA-Public Use
  Company Number: None

PATIENT
  Age: 28 Year
  Sex: Male
  Weight: 86.1834 kg

DRUGS (1)
  1. BEVACIZUMAB GENENTECH [Suspect]
     Indication: NON-SMALL CELL LUNG CANCER
     Dosage: 15MG/KG Q3 WEEKS IV
     Route: 042
     Dates: start: 20080101, end: 20080301

REACTIONS (1)
  - ACQUIRED TRACHEO-OESOPHAGEAL FISTULA [None]
